FAERS Safety Report 21385884 (Version 1)
Quarter: 2022Q3

REPORT INFORMATION
  Report Type: Spontaneous
  Country: ES (occurrence: ES)
  Receive Date: 20220928
  Receipt Date: 20220928
  Transmission Date: 20221027
  Serious: Yes (Other)
  Sender: FDA-Public Use
  Company Number: ES-NOVARTISPH-NVSC2022ES213180

PATIENT
  Sex: Male

DRUGS (2)
  1. ESTRADIOL HEMIHYDRATE [Suspect]
     Active Substance: ESTRADIOL HEMIHYDRATE
     Indication: Product used for unknown indication
     Dosage: UNK (COUPLE OF YEARS AGO)
     Route: 065
  2. ESTRADIOL HEMIHYDRATE [Suspect]
     Active Substance: ESTRADIOL HEMIHYDRATE
     Dosage: 2 MG, BID (2MG MORNING AND 2MG AFTERNOON)
     Route: 048
     Dates: start: 202202

REACTIONS (3)
  - Swelling face [Recovering/Resolving]
  - Lip swelling [Recovering/Resolving]
  - Product use issue [Unknown]

NARRATIVE: CASE EVENT DATE: 20220101
